FAERS Safety Report 15527093 (Version 1)
Quarter: 2018Q4

REPORT INFORMATION
  Report Type: Spontaneous
  Country: FR (occurrence: FR)
  Receive Date: 20181018
  Receipt Date: 20181018
  Transmission Date: 20190205
  Serious: Yes (Disabling)
  Sender: FDA-Public Use
  Company Number: FR-TEVA-2018-FR-965692

PATIENT
  Age: 73 Year
  Sex: Male

DRUGS (7)
  1. PREDNISONE. [Suspect]
     Active Substance: PREDNISONE
     Indication: THROMBOCYTOPENIA
     Dosage: 60 MILLIGRAM DAILY;
     Route: 048
     Dates: start: 20180627
  2. TEMERIT [Concomitant]
     Active Substance: NEBIVOLOL
     Route: 065
  3. OGAST [Concomitant]
     Active Substance: LANSOPRAZOLE
     Route: 065
  4. NEORECORMON [Suspect]
     Active Substance: ERYTHROPOIETIN
     Indication: ANAEMIA
     Route: 058
  5. OLMETEC [Concomitant]
     Active Substance: OLMESARTAN MEDOXOMIL
     Route: 065
  6. REVOLADE 25 MG, COMPRIM? PELLICUL? [Suspect]
     Active Substance: ELTROMBOPAG
     Indication: THROMBOCYTOPENIA
     Dosage: 2 DOSAGE FORMS DAILY;
     Route: 048
     Dates: start: 20180627, end: 20180711
  7. CRESTOR [Concomitant]
     Active Substance: ROSUVASTATIN CALCIUM
     Route: 065

REACTIONS (1)
  - Peripheral artery thrombosis [Recovered/Resolved with Sequelae]

NARRATIVE: CASE EVENT DATE: 20180711
